FAERS Safety Report 7751505-7 (Version None)
Quarter: 2011Q3

REPORT INFORMATION
  Report Type: 
  Country: None (occurrence: None)
  Receive Date: 20110914
  Receipt Date: 20110907
  Transmission Date: 20111222
  Serious: Yes (Hospitalization)
  Sender: FDA-Public Use
  Company Number: PHEH2011US03690

PATIENT
  Age: 13 Year
  Sex: Male
  Weight: 35 kg

DRUGS (2)
  1. TOBI [Suspect]
     Dosage: 300 MG, TWICE A DAY VIA NEBULIZER FOR 28 DAYS ON THEN 28 DAYS OFF
     Dates: start: 20100416
  2. PULMOZYME [Concomitant]

REACTIONS (1)
  - INFECTION [None]
